FAERS Safety Report 5345545-5 (Version None)
Quarter: 2007Q2

REPORT INFORMATION
  Report Type: 
  Country: None (occurrence: None)
  Receive Date: 20070601
  Receipt Date: 20070601
  Transmission Date: 20071010
  Serious: Yes (Other)
  Sender: FDA-Public Use
  Company Number: None

PATIENT
  Sex: Male

DRUGS (6)
  1. REVLIMID [Suspect]
     Indication: MULTIPLE MYELOMA
     Dosage: 5MG 3 TIMES A WEEK PO
     Route: 048
  2. AMCINONIDE CREAM [Concomitant]
  3. PERIACTIN [Concomitant]
  4. HYDROXYZINE HYDROCHLORIDE [Concomitant]
  5. VICODIN [Concomitant]
  6. GABAPENTIN [Concomitant]

REACTIONS (2)
  - PRURITUS [None]
  - RASH [None]
